FAERS Safety Report 5234109-X (Version None)
Quarter: 2007Q1

REPORT INFORMATION
  Report Type: 
  Country: None (occurrence: None)
  Receive Date: 20070208
  Receipt Date: 20070131
  Transmission Date: 20070707
  Serious: Yes (Other)
  Sender: FDA-Public Use
  Company Number: AU-PFIZER INC-2007008911

PATIENT
  Sex: Female

DRUGS (1)
  1. LYRICA [Suspect]
     Indication: PAIN IN EXTREMITY
     Dates: start: 20061122, end: 20061123

REACTIONS (4)
  - FEAR [None]
  - LOSS OF CONTROL OF LEGS [None]
  - MALAISE [None]
  - THINKING ABNORMAL [None]
